FAERS Safety Report 11635257 (Version 3)
Quarter: 2015Q4

REPORT INFORMATION
  Report Type: Spontaneous
  Country: IT (occurrence: IT)
  Receive Date: 20151015
  Receipt Date: 20151202
  Transmission Date: 20160304
  Serious: Yes (Death)
  Sender: FDA-Public Use
  Company Number: IT-009507513-1510ITA006644

PATIENT
  Age: 61 Year
  Sex: Male
  Weight: 63 kg

DRUGS (11)
  1. KANRENOL [Concomitant]
     Active Substance: CANRENOATE POTASSIUM
     Indication: HYPERALDOSTERONISM
     Dosage: 100 MG, QD
     Route: 048
     Dates: start: 20150129, end: 20150130
  2. KANRENOL [Concomitant]
     Active Substance: CANRENOATE POTASSIUM
     Dosage: 0.5 DF, QD
     Route: 048
     Dates: start: 20150423, end: 20150424
  3. REBETOL [Suspect]
     Active Substance: RIBAVIRIN
     Indication: ACUTE HEPATITIS C
     Dosage: 1 G (2 TABLETS + 3 TABLET),  DAILY
     Route: 048
     Dates: start: 20150626, end: 20150917
  4. REBETOL [Suspect]
     Active Substance: RIBAVIRIN
     Dosage: 600 MG, QD
     Route: 048
     Dates: start: 20150908
  5. SOVALDI [Suspect]
     Active Substance: SOFOSBUVIR
     Indication: HEPATITIS C ANTIBODY POSITIVE
     Dosage: 400 MG, DAILY
     Route: 048
     Dates: start: 20150626, end: 20150917
  6. INDERAL [Concomitant]
     Active Substance: PROPRANOLOL HYDROCHLORIDE
     Indication: PORTAL HYPERTENSION
     Dosage: HALF TABLET
     Dates: start: 20150619, end: 20150722
  7. INDERAL [Concomitant]
     Active Substance: PROPRANOLOL HYDROCHLORIDE
     Dosage: HALF PLUS ONE-QUARTER TABLET , QD
     Dates: start: 20150723
  8. KANRENOL [Concomitant]
     Active Substance: CANRENOATE POTASSIUM
     Dosage: 1 TABLET + HALF TABLET
     Route: 048
     Dates: start: 2015
  9. OLYSIO [Suspect]
     Active Substance: SIMEPREVIR
     Indication: HEPATITIS C ANTIBODY POSITIVE
     Dosage: 150 MG, DAILY
     Route: 048
     Dates: start: 20150626, end: 20150917
  10. HELIXATE NEXGEN [Concomitant]
     Active Substance: ANTIHEMOPHILIC FACTOR, HUMAN RECOMBINANT
     Dosage: 1 BOTTLE AS REQUIRES
     Route: 042
     Dates: start: 2015
  11. MEPRAL (OMEPRAZOLE) [Concomitant]
     Dosage: 1 TABLET, UNK
     Dates: start: 2015

REACTIONS (1)
  - Death [Fatal]

NARRATIVE: CASE EVENT DATE: 20150926
